FAERS Safety Report 25283629 (Version 1)
Quarter: 2025Q2

REPORT INFORMATION
  Report Type: Spontaneous
  Country: US (occurrence: US)
  Receive Date: 20250508
  Receipt Date: 20250508
  Transmission Date: 20250717
  Serious: Yes (Hospitalization)
  Sender: FERRING
  Company Number: US-FERRINGPH-2025FE02172

PATIENT

DRUGS (1)
  1. ADSTILADRIN [Suspect]
     Active Substance: NADOFARAGENE FIRADENOVEC-VNCG
     Indication: Product used for unknown indication
     Route: 065

REACTIONS (4)
  - Confusional state [Recovered/Resolved]
  - Brain fog [Recovered/Resolved]
  - Pyrexia [Recovered/Resolved]
  - Therapy non-responder [Unknown]
